FAERS Safety Report 22085153 (Version 2)
Quarter: 2023Q1

REPORT INFORMATION
  Report Type: Spontaneous
  Country: CN (occurrence: CN)
  Receive Date: 20230310
  Receipt Date: 20230313
  Transmission Date: 20230417
  Serious: Yes (Other)
  Sender: FDA-Public Use
  Company Number: CN-009507513-2303CHN001387

PATIENT
  Age: 60 Year
  Sex: Male

DRUGS (1)
  1. LAGEVRIO [Suspect]
     Active Substance: MOLNUPIRAVIR
     Indication: COVID-19 treatment
     Dosage: 0.8G, EVERY 12 HOURS [Q12H], BY NASAL FEEDING,
     Route: 045
     Dates: start: 20230120, end: 20230125

REACTIONS (4)
  - Anuria [Unknown]
  - Diarrhoea [Recovering/Resolving]
  - Sputum retention [Unknown]
  - COVID-19 [Unknown]

NARRATIVE: CASE EVENT DATE: 20230101
